FAERS Safety Report 10206935 (Version 1)
Quarter: 2014Q2

REPORT INFORMATION
  Report Type: Spontaneous
  Country: US (occurrence: None)
  Receive Date: 20140528
  Receipt Date: 20140528
  Transmission Date: 20141212
  Serious: Yes (Life-Threatening, Hospitalization, Other)
  Sender: FDA-Public Use
  Company Number: None

PATIENT
  Age: 22 Year
  Sex: Female

DRUGS (2)
  1. METOPROLOL TARTRATE [Suspect]
     Indication: TACHYCARDIA
     Dosage: 1/2 TABLET, TWICE DAILY, TAKEN BY MOUTH
     Route: 048
     Dates: start: 20140328, end: 20140508
  2. CARVEDILOL [Suspect]
     Indication: HEART RATE INCREASED
     Dosage: 1 TABLET, TWICE DAILY
     Dates: start: 20140517, end: 20140522

REACTIONS (8)
  - Chest discomfort [None]
  - Dizziness [None]
  - Bradycardia [None]
  - Chest pain [None]
  - Pain in jaw [None]
  - Back pain [None]
  - Pain in extremity [None]
  - Glossodynia [None]
